FAERS Safety Report 6750129-8 (Version None)
Quarter: 2010Q2

REPORT INFORMATION
  Report Type: 
  Country: None (occurrence: None)
  Receive Date: 20100601
  Receipt Date: 20100525
  Transmission Date: 20101027
  Serious: Yes (Hospitalization)
  Sender: FDA-Public Use
  Company Number: FR-ASTRAZENECA-2010SE23973

PATIENT
  Age: 72 Year
  Sex: Male

DRUGS (2)
  1. XYLOCAINE [Suspect]
     Dosage: ONCE/SINGLE ADMINISTRATION.
     Route: 014
     Dates: start: 20100412
  2. ALTIM [Suspect]
     Dosage: ONCE/SINGLE ADMINISTRATION.
     Route: 014
     Dates: start: 20100412

REACTIONS (1)
  - THROMBOCYTOPENIA [None]
